FAERS Safety Report 10255870 (Version 1)
Quarter: 2014Q2

REPORT INFORMATION
  Report Type: Spontaneous
  Country: US (occurrence: None)
  Receive Date: 20140522
  Receipt Date: 20140522
  Transmission Date: 20141212
  Serious: No
  Sender: FDA-Public Use
  Company Number: 1000053341

PATIENT
  Age: 61 Year
  Sex: Female

DRUGS (4)
  1. TUDORZA PRESSAIR (ACLIDINIUM BROMIDE) (400 MICROGRAM, POWDER) [Suspect]
     Indication: CHRONIC OBSTRUCTIVE PULMONARY DISEASE
     Route: 055
     Dates: start: 2013
  2. ALBUTEROL [Concomitant]
  3. LISINOPRIL [Concomitant]
  4. OMEPRAZOLE (40 MILLIGRAM, CAPSULES) [Concomitant]

REACTIONS (2)
  - Ear pain [None]
  - Nasopharyngitis [None]
